FAERS Safety Report 12495649 (Version 1)
Quarter: 2016Q2

REPORT INFORMATION
  Report Type: Spontaneous
  Country: CA (occurrence: CA)
  Receive Date: 20160624
  Receipt Date: 20160624
  Transmission Date: 20160815
  Serious: Yes (Other)
  Sender: FDA-Public Use
  Company Number: CA-JNJFOC-20160618636

PATIENT
  Age: 8 Decade
  Sex: Male

DRUGS (4)
  1. DICLOFENAC [Concomitant]
     Active Substance: DICLOFENAC
     Route: 065
  2. REMICADE [Suspect]
     Active Substance: INFLIXIMAB
     Indication: RHEUMATOID ARTHRITIS
     Route: 042
     Dates: start: 20160209
  3. FENTANYL. [Concomitant]
     Active Substance: FENTANYL
     Route: 062
  4. HYDROMORPHONE [Concomitant]
     Active Substance: HYDROMORPHONE
     Indication: PAIN
     Route: 048

REACTIONS (3)
  - Malaise [Unknown]
  - Rheumatoid arthritis [Unknown]
  - Otitis externa [Recovering/Resolving]

NARRATIVE: CASE EVENT DATE: 2016
